FAERS Safety Report 5266644-2 (Version None)
Quarter: 2007Q1

REPORT INFORMATION
  Report Type: 
  Country: None (occurrence: None)
  Receive Date: 20070312
  Receipt Date: 20070228
  Transmission Date: 20070707
  Serious: Yes (Hospitalization, Other)
  Sender: FDA-Public Use
  Company Number: 2007SP003960

PATIENT
  Sex: Female

DRUGS (5)
  1. PEG-INTRON [Suspect]
     Indication: HEPATITIS C
     Dosage: 100 MCG QW
     Dates: start: 20060301
  2. REBETOL [Suspect]
     Indication: HEPATITIS C
     Dosage: 1000 MG QD ; 800 MG QD
     Dates: start: 20060301
  3. REBETOL [Suspect]
     Indication: HEPATITIS C
     Dosage: 1000 MG QD ; 800 MG QD
     Dates: start: 20060801
  4. CORTICOSTEROID NOS [Concomitant]
  5. INFLUNEZA VACCINE [Concomitant]

REACTIONS (3)
  - ACUTE ABDOMEN [None]
  - ANAEMIA [None]
  - APPENDICECTOMY [None]
